FAERS Safety Report 6482476-1 (Version None)
Quarter: 2009Q4

REPORT INFORMATION
  Report Type: 
  Country: None (occurrence: None)
  Receive Date: 20091208
  Receipt Date: 20090514
  Transmission Date: 20100525
  Serious: No
  Sender: FDA-Public Use
  Company Number: US-AMGEN-TCS347137

PATIENT
  Sex: Male

DRUGS (11)
  1. ENBREL [Suspect]
     Indication: PSORIATIC ARTHROPATHY
  2. LITHIUM [Concomitant]
  3. QUINAPRIL [Concomitant]
  4. INSULIN [Concomitant]
  5. ACTOS [Concomitant]
  6. DOVONEX [Concomitant]
  7. KETOPROFEN [Concomitant]
  8. AMBIEN [Concomitant]
  9. VITAMIN A [Concomitant]
  10. VITAMIN D [Concomitant]
  11. VITAMIN B COMPLEX CAP [Concomitant]

REACTIONS (1)
  - BLOOD GLUCOSE DECREASED [None]
